FAERS Safety Report 5507487-1 (Version None)
Quarter: 2007Q4

REPORT INFORMATION
  Report Type: 
  Country: None (occurrence: None)
  Receive Date: 20071106
  Receipt Date: 20071026
  Transmission Date: 20080405
  Serious: Yes (Other)
  Sender: FDA-Public Use
  Company Number: FR-JNJFOC-20071006739

PATIENT
  Age: 74 Year
  Sex: Female

DRUGS (1)
  1. EPITOMAX [Suspect]
     Indication: HEADACHE
     Dosage: 2 TABLETS A DAY (IN THE EVENING)
     Route: 048

REACTIONS (2)
  - OPTIC NERVE DISORDER [None]
  - SCOTOMA [None]
